FAERS Safety Report 14638000 (Version 1)
Quarter: 2018Q1

REPORT INFORMATION
  Report Type: Spontaneous
  Country: US (occurrence: US)
  Receive Date: 20180314
  Receipt Date: 20180314
  Transmission Date: 20180509
  Serious: No
  Sender: FDA-Public Use
  Company Number: US-VYERA PHARMACEUTICALS, LLC-2017TNG00005

PATIENT
  Age: 38 Year
  Sex: Female
  Weight: 48.98 kg

DRUGS (7)
  1. BACTRIM [Concomitant]
     Active Substance: SULFAMETHOXAZOLE\TRIMETHOPRIM
  2. LEUCOVORIN. [Concomitant]
     Active Substance: LEUCOVORIN
     Dosage: UNK, EVERY 48 HOURS
     Dates: start: 20170114
  3. DARAPRIM [Suspect]
     Active Substance: PYRIMETHAMINE
     Indication: TOXOPLASMOSIS
     Dosage: 25-100 MG, 2X/DAY
     Route: 048
     Dates: start: 20170114, end: 20170131
  4. DARAPRIM [Suspect]
     Active Substance: PYRIMETHAMINE
     Dosage: UNK
     Dates: start: 20170201
  5. FOLIC ACID. [Concomitant]
     Active Substance: FOLIC ACID
  6. CLINDAMYCIN. [Concomitant]
     Active Substance: CLINDAMYCIN
     Dosage: UNK
     Dates: start: 20170130
  7. SULFADIAZINE. [Concomitant]
     Active Substance: SULFADIAZINE

REACTIONS (12)
  - Constipation [Recovered/Resolved]
  - Tinnitus [Not Recovered/Not Resolved]
  - Dysphagia [Not Recovered/Not Resolved]
  - Dizziness [Recovering/Resolving]
  - Weight decreased [Not Recovered/Not Resolved]
  - Incorrect dose administered [Recovered/Resolved]
  - Pyrexia [Not Recovered/Not Resolved]
  - Anxiety [Not Recovered/Not Resolved]
  - Drug dose omission [Recovered/Resolved]
  - Decreased appetite [Not Recovered/Not Resolved]
  - Insomnia [Not Recovered/Not Resolved]
  - Nightmare [Not Recovered/Not Resolved]

NARRATIVE: CASE EVENT DATE: 201701
